FAERS Safety Report 17942688 (Version 1)
Quarter: 2020Q2

REPORT INFORMATION
  Report Type: Spontaneous
  Country: JP (occurrence: JP)
  Receive Date: 20200625
  Receipt Date: 20200625
  Transmission Date: 20200714
  Serious: Yes (Death, Life-Threatening, Other)
  Sender: FDA-Public Use
  Company Number: JP-AUROBINDO-AUR-APL-2020-030736

PATIENT
  Age: 81 Year
  Sex: Male

DRUGS (1)
  1. FOLOTYN [Suspect]
     Active Substance: PRALATREXATE
     Indication: ANGIOCENTRIC LYMPHOMA
     Dosage: 1 DOSAGE FORM (JUST ONE DOSE)
     Route: 042
     Dates: start: 20200603, end: 20200603

REACTIONS (5)
  - Candida infection [Fatal]
  - Opportunistic infection [Fatal]
  - Stomatitis [Unknown]
  - Viral infection [Fatal]
  - Neutrophil count decreased [Unknown]
